FAERS Safety Report 22010130 (Version 3)
Quarter: 2023Q2

REPORT INFORMATION
  Report Type: Spontaneous
  Country: US (occurrence: US)
  Receive Date: 20230220
  Receipt Date: 20230403
  Transmission Date: 20230721
  Serious: No
  Sender: FDA-Public Use
  Company Number: US-TAKEDA-2023TUS016767

PATIENT
  Sex: Female

DRUGS (3)
  1. EXKIVITY [Suspect]
     Active Substance: MOBOCERTINIB
     Indication: Product used for unknown indication
     Dosage: 160 MILLIGRAM, QD
     Route: 065
  2. EXKIVITY [Suspect]
     Active Substance: MOBOCERTINIB
     Dosage: 120 MILLIGRAM, QD
     Route: 065
  3. EXKIVITY [Suspect]
     Active Substance: MOBOCERTINIB
     Dosage: 80 MILLIGRAM, QD
     Route: 065

REACTIONS (10)
  - Skin infection [Recovered/Resolved]
  - Liver function test increased [Unknown]
  - Candida infection [Unknown]
  - Photosensitivity reaction [Unknown]
  - Rhinorrhoea [Unknown]
  - Rash [Recovered/Resolved]
  - Fatigue [Unknown]
  - Dry eye [Unknown]
  - Nausea [Unknown]
  - Diarrhoea [Unknown]
